FAERS Safety Report 9746721 (Version 1)
Quarter: 2013Q4

REPORT INFORMATION
  Report Type: Report from Study
  Country: US (occurrence: US)
  Receive Date: 20131211
  Receipt Date: 20131211
  Transmission Date: 20140711
  Serious: Yes (Other)
  Sender: FDA-Public Use
  Company Number: US-ABBVIE-13P-163-1176244-00

PATIENT
  Sex: Female
  Weight: 81.72 kg

DRUGS (5)
  1. HUMIRA [Suspect]
     Indication: RHEUMATOID ARTHRITIS
     Dates: start: 201301, end: 201311
  2. SIMPONI [Concomitant]
     Indication: RHEUMATOID ARTHRITIS
     Dates: start: 201311
  3. ARMOUR THYROID [Concomitant]
     Indication: HYPOTHYROIDISM
  4. LEFLUNOMIDE [Concomitant]
     Indication: RHEUMATOID ARTHRITIS
  5. UNKNOWN MEDICATION [Concomitant]
     Indication: PRODUCT USED FOR UNKNOWN INDICATION

REACTIONS (5)
  - Disability [Not Recovered/Not Resolved]
  - Carpal tunnel decompression [Recovered/Resolved]
  - Peripheral nerve decompression [Recovered/Resolved]
  - Drug effect decreased [Not Recovered/Not Resolved]
  - Depression [Unknown]
